FAERS Safety Report 7371490-X (Version None)
Quarter: 2011Q1

REPORT INFORMATION
  Report Type: 
  Country: None (occurrence: None)
  Receive Date: 20110322
  Receipt Date: 20110322
  Transmission Date: 20110831
  Serious: Yes (Life-Threatening, Hospitalization)
  Sender: FDA-Public Use
  Company Number: None

PATIENT
  Sex: Female
  Weight: 105.2345 kg

DRUGS (15)
  1. DITROPAN [Concomitant]
  2. METHYLIN [Concomitant]
  3. AMBIEN [Concomitant]
  4. ATENOLOL [Concomitant]
  5. REMERON [Concomitant]
  6. SOMA [Concomitant]
  7. SEPTRA [Concomitant]
  8. AMITRIPTYLINE HCL [Concomitant]
  9. GEODON [Concomitant]
  10. NUVARING [Suspect]
     Indication: CONTRACEPTION
     Dosage: 1 MONTHLY VAG
     Route: 067
     Dates: start: 20090603, end: 20110216
  11. NUVARING [Suspect]
     Indication: MENSTRUAL DISORDER
     Dosage: 1 MONTHLY VAG
     Route: 067
     Dates: start: 20090603, end: 20110216
  12. WARFARIN 5MG TARO PHARMACEUTICA INDUSTRIES [Suspect]
     Indication: THROMBOSIS
     Dosage: 5MG DAILY PO
     Route: 048
     Dates: start: 20110227, end: 20110306
  13. LORTAB [Concomitant]
  14. TOPAMAX [Concomitant]
  15. KLONOPIN [Concomitant]

REACTIONS (5)
  - PYREXIA [None]
  - PELVIC VENOUS THROMBOSIS [None]
  - ABDOMINAL PAIN [None]
  - CYSTITIS [None]
  - PRURITUS [None]
